FAERS Safety Report 24557450 (Version 1)
Quarter: 2024Q4

REPORT INFORMATION
  Report Type: Spontaneous
  Country: US (occurrence: US)
  Receive Date: 20241028
  Receipt Date: 20241028
  Transmission Date: 20250115
  Serious: Yes (Hospitalization)
  Sender: AUROBINDO
  Company Number: US-MLMSERVICE-20241009-PI219007-00145-1

PATIENT
  Age: 6 Decade
  Sex: Male

DRUGS (10)
  1. HYDROCODONE BITARTRATE AND ACETAMINOPHEN [Suspect]
     Active Substance: ACETAMINOPHEN\HYDROCODONE BITARTRATE
     Indication: Back pain
     Dosage: UNK UNK, AS NECESSARY (HYDROCODONE-ACETAMINOPHEN 10?325 MG EVERY SIX HOURS AS NEEDED FOR THE LAST FI
     Route: 048
  2. HYDROCODONE BITARTRATE AND ACETAMINOPHEN [Suspect]
     Active Substance: ACETAMINOPHEN\HYDROCODONE BITARTRATE
     Dosage: UNK (HYDROCODONE-ACETAMINOPHEN 40MG/325MG/DAY)
     Route: 065
  3. HYDROMORPHONE [Suspect]
     Active Substance: HYDROMORPHONE
     Indication: Analgesic therapy
     Dosage: UNK (0.4?1 MILLIGRAM/HOUR)
     Route: 065
  4. HYDROMORPHONE [Suspect]
     Active Substance: HYDROMORPHONE
     Dosage: UNK UNK, AS NECESSARY (0.5?1 MILLIGRAM EVERY HOUR AS NEEDED, 1?1.5 MILLIGRAM EVERY TWO HOURS AS NEED
     Route: 065
  5. HYDROMORPHONE [Suspect]
     Active Substance: HYDROMORPHONE
     Dosage: 12 MILLIGRAM, ONCE A DAY (12-30 MILLIGRAM/DAY)
     Route: 042
  6. HYDROMORPHONE [Suspect]
     Active Substance: HYDROMORPHONE
     Dosage: 30 MILLIGRAM, ONCE A DAY (12-30 MILLIGRAM/DAY)
     Route: 042
  7. METHADONE [Suspect]
     Active Substance: METHADONE HYDROCHLORIDE
     Indication: Analgesic therapy
     Dosage: 5 MILLIGRAM, ONCE A DAY (5-23 MG/DAY PO)
     Route: 048
  8. METHADONE [Suspect]
     Active Substance: METHADONE HYDROCHLORIDE
     Dosage: 25 MILLIGRAM, ONCE A DAY (5-23 MG/DAY PO)
     Route: 048
  9. FENTANYL [Suspect]
     Active Substance: FENTANYL
     Indication: Analgesic therapy
     Dosage: 50 MICROGRAM, EVERY HOUR (50?150 MICROGRAM PER HOUR)
     Route: 062
  10. FENTANYL [Suspect]
     Active Substance: FENTANYL
     Dosage: 150 MICROGRAM, EVERY HOUR (50?150 MICROGRAM PER HOUR)
     Route: 062

REACTIONS (1)
  - Hyperaesthesia [Unknown]
